FAERS Safety Report 12707452 (Version 1)
Quarter: 2016Q3

REPORT INFORMATION
  Report Type: Spontaneous
  Country: DK (occurrence: DK)
  Receive Date: 20160901
  Receipt Date: 20160901
  Transmission Date: 20161109
  Serious: Yes (Life-Threatening, Hospitalization, Other)
  Sender: FDA-Public Use
  Company Number: DK-ASTRAZENECA-2016SE91020

PATIENT
  Sex: Male

DRUGS (13)
  1. SOLIAN [Suspect]
     Active Substance: AMISULPRIDE
     Indication: SCHIZOPHRENIA
     Route: 048
     Dates: start: 20121121
  2. ABILIFY [Suspect]
     Active Substance: ARIPIPRAZOLE
     Indication: SCHIZOPHRENIA
     Dosage: 10.0MG UNKNOWN
     Route: 048
     Dates: start: 20120822, end: 201208
  3. RISPERIDON [Suspect]
     Active Substance: RISPERIDONE
     Indication: SCHIZOPHRENIA
     Route: 048
     Dates: start: 20150115
  4. CIPRALEX [Suspect]
     Active Substance: ESCITALOPRAM OXALATE
     Indication: DEPRESSION
     Route: 048
     Dates: start: 20120611, end: 201208
  5. IMOCLONE [Suspect]
     Active Substance: ZOPICLONE
     Indication: INSOMNIA
     Route: 048
     Dates: start: 20110926, end: 20120120
  6. TRUXAL [Suspect]
     Active Substance: CHLORPROTHIXENE
     Indication: SCHIZOPHRENIA
     Dosage: 265.0MG UNKNOWN
     Route: 048
     Dates: start: 20120831
  7. SEROQUEL [Suspect]
     Active Substance: QUETIAPINE FUMARATE
     Indication: SCHIZOPHRENIA
     Dosage: 100.0MG UNKNOWN
     Route: 048
     Dates: start: 20120625, end: 20120628
  8. SEROQUEL [Suspect]
     Active Substance: QUETIAPINE FUMARATE
     Indication: SCHIZOPHRENIA
     Dosage: 200.0MG UNKNOWN
     Route: 048
     Dates: start: 20120822, end: 201208
  9. IMOCLONE [Suspect]
     Active Substance: ZOPICLONE
     Indication: INSOMNIA
     Dosage: 7.5MG UNKNOWN
     Route: 048
     Dates: start: 20120611
  10. CIPRALEX [Suspect]
     Active Substance: ESCITALOPRAM OXALATE
     Indication: DEPRESSION
     Route: 048
     Dates: start: 20110926, end: 20120120
  11. OXAPAX [Suspect]
     Active Substance: OXAZEPAM
     Indication: SEDATION
     Route: 048
     Dates: start: 20120629
  12. SEROQUEL [Suspect]
     Active Substance: QUETIAPINE FUMARATE
     Indication: SCHIZOPHRENIA
     Dosage: 300.0MG UNKNOWN
     Route: 048
     Dates: start: 20120629, end: 20120822
  13. ZELDOX [Suspect]
     Active Substance: ZIPRASIDONE
     Indication: SCHIZOPHRENIA
     Dosage: 80 MG INCREASING TO 160 MG
     Route: 048
     Dates: start: 20120925

REACTIONS (7)
  - Suicidal ideation [Unknown]
  - Suicide attempt [Unknown]
  - Sedation [Unknown]
  - Drug dose omission [Unknown]
  - Social avoidant behaviour [Unknown]
  - Weight increased [Unknown]
  - Restlessness [Unknown]
